FAERS Safety Report 7852312-7 (Version None)
Quarter: 2011Q4

REPORT INFORMATION
  Report Type: 
  Country: None (occurrence: None)
  Receive Date: 20111026
  Receipt Date: 20111013
  Transmission Date: 20120403
  Serious: Yes (Hospitalization)
  Sender: FDA-Public Use
  Company Number: JP-ELI_LILLY_AND_COMPANY-JP201107005528

PATIENT
  Age: 55 Year
  Sex: Female

DRUGS (2)
  1. FORTEO [Suspect]
     Route: 058
  2. FORTEO [Suspect]
     Route: 058

REACTIONS (6)
  - HEADACHE [None]
  - NAUSEA [None]
  - HOT FLUSH [None]
  - POLLAKIURIA [None]
  - JOINT ARTHROPLASTY [None]
  - HOSPITALISATION [None]
